FAERS Safety Report 9266627 (Version 1)
Quarter: 2013Q2

REPORT INFORMATION
  Report Type: Spontaneous
  Country: US (occurrence: US)
  Receive Date: 20130502
  Receipt Date: 20130502
  Transmission Date: 20140414
  Serious: Yes (Hospitalization)
  Sender: FDA-Public Use
  Company Number: US-BAYER-2013-052717

PATIENT
  Age: 19 Year
  Sex: Female

DRUGS (5)
  1. GIANVI [Suspect]
     Dosage: UNK
     Dates: start: 20090316, end: 20120427
  2. YAZ [Suspect]
     Dosage: UNK
     Dates: start: 20090316
  3. AZITHROMYCIN [Concomitant]
     Dosage: 250 MG, UNK
     Route: 048
     Dates: start: 20120103
  4. AZITHROMYCIN [Concomitant]
     Dosage: 250 MG, UNK
     Route: 048
     Dates: start: 20120108
  5. SINGULAIR [Concomitant]
     Dosage: 10 MG, UNK
     Route: 048
     Dates: start: 20120103

REACTIONS (3)
  - Pulmonary embolism [None]
  - Pleural effusion [None]
  - Chest pain [None]
